FAERS Safety Report 8616851-3 (Version None)
Quarter: 2012Q3

REPORT INFORMATION
  Report Type: 
  Country: None (occurrence: None)
  Receive Date: 20120823
  Receipt Date: 20120808
  Transmission Date: 20120928
  Serious: No
  Sender: FDA-Public Use
  Company Number: US-009507513-1208USA004178

PATIENT

DRUGS (1)
  1. IMPLANON [Suspect]
     Dosage: UNK
     Dates: start: 20120101, end: 20120401

REACTIONS (3)
  - MOOD SWINGS [None]
  - WEIGHT DECREASED [None]
  - MENORRHAGIA [None]
